FAERS Safety Report 5129114-8 (Version None)
Quarter: 2006Q4

REPORT INFORMATION
  Report Type: 
  Country: None (occurrence: None)
  Receive Date: 20061011
  Receipt Date: 20060922
  Transmission Date: 20070319
  Serious: Yes (Hospitalization)
  Sender: FDA-Public Use
  Company Number: JP200608004040

PATIENT
  Age: 89 Year
  Sex: Female
  Weight: 42 kg

DRUGS (6)
  1. RALOXIFENE HCL [Suspect]
     Indication: OSTEOPOROSIS POSTMENOPAUSAL
     Dosage: 60 MG, DAILY (1/D), ORAL
     Route: 048
     Dates: start: 20050301, end: 20050625
  2. CONIEL (BENIDIPINE HYDROCHLORIDE) [Concomitant]
  3. ALLOPURINOL [Concomitant]
  4. COMELIAN (DILAZEP DIHYDROCHLORIDE) [Concomitant]
  5. UBIDECARENONE (UBIDECARENONE) [Concomitant]
  6. MUCOSTA (REBAMIPIDE) [Concomitant]

REACTIONS (1)
  - HEAT STROKE [None]
